FAERS Safety Report 4444823-1 (Version None)
Quarter: 2004Q3

REPORT INFORMATION
  Report Type: 
  Country: None (occurrence: None)
  Receive Date: 20040903
  Receipt Date: 20040819
  Transmission Date: 20050211
  Serious: No
  Sender: FDA-Public Use
  Company Number: 2004AP04397

PATIENT
  Sex: Female

DRUGS (2)
  1. IRESSA [Suspect]
     Indication: LUNG NEOPLASM MALIGNANT
     Dosage: 250 MG DAILY PO
     Route: 048
     Dates: start: 20040701, end: 20040801
  2. RADIATION THERAPY [Concomitant]

REACTIONS (1)
  - EOSINOPHIL COUNT INCREASED [None]
